FAERS Safety Report 6791291-0 (Version None)
Quarter: 2010Q2

REPORT INFORMATION
  Report Type: 
  Country: None (occurrence: None)
  Receive Date: 20100624
  Receipt Date: 20100617
  Transmission Date: 20101027
  Serious: Yes (Other)
  Sender: FDA-Public Use
  Company Number: CHPA2010JP10399

PATIENT
  Sex: Male

DRUGS (1)
  1. NICOTINELL TTS (NCH) [Suspect]
     Indication: SMOKING CESSATION THERAPY
     Dosage: 14 MG, QD
     Route: 062
     Dates: start: 20100617, end: 20100617

REACTIONS (1)
  - HAEMATURIA [None]
